FAERS Safety Report 6025255-1 (Version None)
Quarter: 2008Q4

REPORT INFORMATION
  Report Type: 
  Country: None (occurrence: None)
  Receive Date: 20081229
  Receipt Date: 20081229
  Transmission Date: 20090506
  Serious: Yes (Other)
  Sender: FDA-Public Use
  Company Number: None

PATIENT
  Sex: Female
  Weight: 65.318 kg

DRUGS (1)
  1. MIRENA [Suspect]
     Indication: CONTRACEPTION
     Dates: start: 20071015, end: 20081227

REACTIONS (20)
  - ABDOMINAL PAIN LOWER [None]
  - ACNE [None]
  - ANXIETY [None]
  - BREAST TENDERNESS [None]
  - DEPRESSED MOOD [None]
  - DRY SKIN [None]
  - DYSPAREUNIA [None]
  - FATIGUE [None]
  - HEADACHE [None]
  - LOSS OF LIBIDO [None]
  - MENSTRUATION IRREGULAR [None]
  - MIGRAINE [None]
  - MOOD SWINGS [None]
  - MUSCLE SPASMS [None]
  - POLLAKIURIA [None]
  - SKIN DISORDER [None]
  - VAGINAL DISCHARGE [None]
  - VAGINAL ODOUR [None]
  - VULVOVAGINAL DRYNESS [None]
  - WEIGHT INCREASED [None]
